FAERS Safety Report 7009015-0 (Version None)
Quarter: 2010Q3

REPORT INFORMATION
  Report Type: 
  Country: None (occurrence: None)
  Receive Date: 20100923
  Receipt Date: 20100823
  Transmission Date: 20110219
  Serious: Yes (Hospitalization, Other)
  Sender: FDA-Public Use
  Company Number: US-BAYER-201017417NA

PATIENT
  Age: 37 Year
  Sex: Female
  Weight: 91 kg

DRUGS (17)
  1. YASMIN [Suspect]
     Indication: ENDOMETRIOSIS
     Route: 048
     Dates: start: 20060701, end: 20090601
  2. OCELLA [Suspect]
     Indication: ENDOMETRIOSIS
     Route: 048
     Dates: start: 20060701, end: 20090601
  3. COPAXONE [Concomitant]
  4. IBUPROFEN [Concomitant]
  5. VICODIN [Concomitant]
     Indication: OPTIC NEURITIS
     Route: 048
  6. ASPIRIN [Concomitant]
  7. LOPRESSOR [Concomitant]
     Dosage: UNIT DOSE: 25 MG
  8. LISINOPRIL [Concomitant]
  9. ZOCOR [Concomitant]
  10. NITROGLYCERIN [Concomitant]
  11. FISH OIL [Concomitant]
  12. AMITRIPTYLINE HCL [Concomitant]
  13. LUNESTA [Concomitant]
  14. SIMVASTATIN [Concomitant]
  15. METOPROLOL TARTRATE [Concomitant]
  16. AMBIEN [Concomitant]
  17. LYRICA [Concomitant]
     Dosage: UNIT DOSE: 75 MG

REACTIONS (14)
  - BLINDNESS [None]
  - CHEST DISCOMFORT [None]
  - CHEST PAIN [None]
  - COUGH [None]
  - DYSPNOEA [None]
  - EYE PAIN [None]
  - FACIAL PAIN [None]
  - FEELING OF BODY TEMPERATURE CHANGE [None]
  - HEMICEPHALALGIA [None]
  - MYOCARDIAL INFARCTION [None]
  - NAUSEA [None]
  - OPTIC NEUROPATHY [None]
  - SINUSITIS [None]
  - VISUAL ACUITY REDUCED [None]
